FAERS Safety Report 23346545 (Version 1)
Quarter: 2023Q4

REPORT INFORMATION
  Report Type: Spontaneous
  Country: US (occurrence: None)
  Receive Date: 20231227
  Receipt Date: 20231227
  Transmission Date: 20240109
  Serious: Yes (Other)
  Sender: FDA-Public Use
  Company Number: None

PATIENT
  Age: 56 Year
  Sex: Female

DRUGS (17)
  1. ORENCIA [Suspect]
     Active Substance: ABATACEPT
     Indication: Rheumatoid arthritis
     Route: 058
     Dates: start: 20230201
  2. ALBUTEROL [Concomitant]
     Active Substance: ALBUTEROL
  3. FERROUS SULFATE [Concomitant]
     Active Substance: FERROUS SULFATE
  4. FLONASE ALGY [Concomitant]
  5. FOLIC ACID [Concomitant]
     Active Substance: FOLIC ACID
  6. HUMALOG [Concomitant]
  7. METHOTREXATE [Concomitant]
     Active Substance: METHOTREXATE
  8. MOUNJARO [Concomitant]
     Active Substance: TIRZEPATIDE
  9. NAPROSYN [Concomitant]
     Active Substance: NAPROXEN
  10. PLAQUENIL [Concomitant]
  11. PREVACID [Concomitant]
     Active Substance: LANSOPRAZOLE
  12. SINGULAIR [Concomitant]
     Active Substance: MONTELUKAST SODIUM
  13. SOLIFENACIN [Concomitant]
     Active Substance: SOLIFENACIN
  14. TRIMETHOPRIM [Concomitant]
     Active Substance: TRIMETHOPRIM
  15. VITAMIN C [Concomitant]
     Active Substance: ASCORBIC ACID
  16. VITAMIN D3 [Concomitant]
     Active Substance: CHOLECALCIFEROL
  17. ZYRTEC ALLGY [Concomitant]

REACTIONS (3)
  - Intentional dose omission [None]
  - Pain [None]
  - Drug ineffective [None]

NARRATIVE: CASE EVENT DATE: 20231227
